FAERS Safety Report 8602141 (Version 2)
Quarter: 2013Q2

REPORT INFORMATION
  Report Type: Spontaneous
  Country: US (occurrence: US)
  Receive Date: 20120607
  Receipt Date: 20130603
  Transmission Date: 20140414
  Serious: No
  Sender: FDA-Public Use
  Company Number: US-PFIZER INC-2012132548

PATIENT
  Age: 57 Year
  Sex: Female

DRUGS (9)
  1. IBUPROFEN [Suspect]
     Dosage: UNK
  2. BENZYLPENICILLIN POTASSIUM [Suspect]
     Dosage: UNK
  3. CELEBREX [Suspect]
     Dosage: UNK
  4. ASPIRIN [Suspect]
     Dosage: UNK
  5. NAPROXEN SODIUM [Suspect]
     Dosage: UNK
  6. SULFUR [Suspect]
     Dosage: UNK
  7. CEPHALEXIN [Suspect]
     Dosage: UNK
  8. AMPHETAMINE [Suspect]
     Dosage: UNK
  9. CRESTOR [Suspect]
     Dosage: UNK

REACTIONS (1)
  - Drug hypersensitivity [Unknown]
